FAERS Safety Report 9150167 (Version 1)
Quarter: 2013Q1

REPORT INFORMATION
  Report Type: Spontaneous
  Country: DK (occurrence: None)
  Receive Date: 20130129
  Receipt Date: 20130129
  Transmission Date: 20140127
  Serious: Yes (Other)
  Sender: FDA-Public Use
  Company Number: 2013MA000626

PATIENT
  Age: 48 Year
  Sex: Female

DRUGS (2)
  1. CITALOPRAM HYDROBROMIDE [Suspect]
     Indication: DEPRESSION
     Route: 048
     Dates: start: 20111110, end: 20121010
  2. ZOPICLONE [Concomitant]

REACTIONS (4)
  - Nausea [None]
  - Vertigo [None]
  - Paraesthesia [None]
  - Paraesthesia [None]
